FAERS Safety Report 20950217 (Version 1)
Quarter: 2022Q2

REPORT INFORMATION
  Report Type: Spontaneous
  Country: US (occurrence: None)
  Receive Date: 20220610
  Receipt Date: 20220610
  Transmission Date: 20220721
  Serious: Yes (Other)
  Sender: FDA-Public Use
  Company Number: None

PATIENT
  Age: 40 Year
  Sex: Female
  Weight: 67.5 kg

DRUGS (10)
  1. PAXLOVID [Suspect]
     Active Substance: NIRMATRELVIR\RITONAVIR
     Indication: COVID-19
  2. FLOVENT [Concomitant]
     Active Substance: FLUTICASONE PROPIONATE
  3. ALBUTEROL [Concomitant]
     Active Substance: ALBUTEROL
  4. levothryroxine [Concomitant]
  5. MIRENA [Concomitant]
     Active Substance: LEVONORGESTREL
  6. OMEPRAZOLE [Concomitant]
     Active Substance: OMEPRAZOLE
  7. VITAMINS [Concomitant]
     Active Substance: VITAMINS
  8. C [Concomitant]
  9. VITAMIN D3 [Concomitant]
     Active Substance: CHOLECALCIFEROL
  10. ZINC [Concomitant]
     Active Substance: ZINC

REACTIONS (3)
  - COVID-19 [None]
  - Rebound effect [None]
  - COVID-19 [None]

NARRATIVE: CASE EVENT DATE: 20220601
